FAERS Safety Report 4316282-0 (Version None)
Quarter: 2004Q1

REPORT INFORMATION
  Report Type: 
  Country: None (occurrence: None)
  Receive Date: 20040312
  Receipt Date: 20040312
  Transmission Date: 20041129
  Serious: No
  Sender: FDA-Public Use
  Company Number: None

PATIENT
  Age: 52 Year
  Sex: Male

DRUGS (3)
  1. EPINEPHRINE [Suspect]
     Indication: CORONARY ARTERY DISEASE
     Dosage: 250 CC 15 CC/HR IV
     Route: 042
     Dates: start: 20040211, end: 20040211
  2. EPINEPHRINE [Suspect]
     Indication: CORONARY ARTERY SURGERY
     Dosage: 250 CC 15 CC/HR IV
     Route: 042
     Dates: start: 20040211, end: 20040211
  3. EPINEPHRINE [Suspect]
     Indication: ECHOCARDIOGRAM
     Dosage: 250 CC 15 CC/HR IV
     Route: 042
     Dates: start: 20040211, end: 20040211

REACTIONS (3)
  - DEVICE FAILURE [None]
  - HYPERTENSION [None]
  - MEDICATION ERROR [None]
